FAERS Safety Report 6097777-9 (Version None)
Quarter: 2009Q1

REPORT INFORMATION
  Report Type: 
  Country: None (occurrence: None)
  Receive Date: 20090223
  Receipt Date: 20081117
  Transmission Date: 20090719
  Serious: Yes (Other)
  Sender: FDA-Public Use
  Company Number: WAES 0811USA02837

PATIENT
  Age: 42 Year
  Sex: Male

DRUGS (15)
  1. ZOCOR [Suspect]
     Dosage: PO
     Route: 048
  2. AMBIEN CR [Concomitant]
  3. DEPAKOTE [Concomitant]
  4. FLOMAX [Concomitant]
  5. FLOVENT [Concomitant]
  6. KEPPRA [Concomitant]
  7. MS CONTIN [Concomitant]
  8. MORPHINE SULFATE [Concomitant]
  9. NEURONTIN [Concomitant]
  10. TRIZIVIR [Concomitant]
  11. ALBUTEROL [Concomitant]
  12. AMITRIPTYLINE HYDROCHLORIDE [Concomitant]
  13. METOPROLOL TARTRATE [Concomitant]
  14. RANITIDINE [Concomitant]
  15. WARFARIN SODIUM [Concomitant]

REACTIONS (1)
  - RHABDOMYOLYSIS [None]
